FAERS Safety Report 17557076 (Version 1)
Quarter: 2020Q1

REPORT INFORMATION
  Report Type: Spontaneous
  Country: IT (occurrence: IT)
  Receive Date: 20200318
  Receipt Date: 20200318
  Transmission Date: 20200409
  Serious: Yes (Other)
  Sender: FDA-Public Use
  Company Number: IT-MYLANLABS-2020M1028020

PATIENT
  Age: 18 Year
  Sex: Male

DRUGS (2)
  1. EFEXOR [Suspect]
     Active Substance: VENLAFAXINE HYDROCHLORIDE
     Indication: SCHIZOPHRENIA
     Dosage: UNK
     Route: 048
     Dates: start: 20180209
  2. RISPERIDONE MYLAN [Suspect]
     Active Substance: RISPERIDONE
     Indication: SCHIZOPHRENIA
     Dosage: 100 MILLIGRAM, QD
     Route: 048
     Dates: start: 20180209, end: 20181001

REACTIONS (11)
  - Weight increased [Unknown]
  - Polydipsia psychogenic [Unknown]
  - Arrhythmia [Unknown]
  - Polyuria [Unknown]
  - Hyperprolactinaemia [Unknown]
  - Hypercholesterolaemia [Unknown]
  - Akathisia [Unknown]
  - Muscle rigidity [Unknown]
  - Vision blurred [Unknown]
  - Dry mouth [Unknown]
  - Nausea [Unknown]

NARRATIVE: CASE EVENT DATE: 20180705
